FAERS Safety Report 7356262-4 (Version None)
Quarter: 2011Q1

REPORT INFORMATION
  Report Type: 
  Country: None (occurrence: None)
  Receive Date: 20110316
  Receipt Date: 20110218
  Transmission Date: 20110831
  Serious: No
  Sender: FDA-Public Use
  Company Number: US-B.I. PHARMACEUTICALS,INC./RIDGEFIELD-2011-BP-05850BP

PATIENT
  Sex: Female

DRUGS (3)
  1. OSCAL [Concomitant]
  2. PRADAXA [Suspect]
     Dates: start: 20110121
  3. UNSPECIFIED MEDICATION [Concomitant]

REACTIONS (5)
  - MENTAL STATUS CHANGES [None]
  - EPISTAXIS [None]
  - CONFUSIONAL STATE [None]
  - ABDOMINAL PAIN UPPER [None]
  - DIZZINESS [None]
